FAERS Safety Report 5119841-0 (Version None)
Quarter: 2006Q3

REPORT INFORMATION
  Report Type: 
  Country: None (occurrence: None)
  Receive Date: 20060929
  Receipt Date: 20060919
  Transmission Date: 20061208
  Serious: Yes (Hospitalization)
  Sender: FDA-Public Use
  Company Number: US017654

PATIENT
  Age: 41 Year
  Sex: Male

DRUGS (3)
  1. PROVIGIL [Suspect]
     Indication: NARCOLEPSY
     Dosage: 200 MG QD ORAL
     Route: 048
     Dates: start: 20060323, end: 20060521
  2. NSAID'S [Suspect]
     Dates: start: 20060428
  3. LUNESTA [Suspect]
     Indication: SLEEP DISORDER THERAPY
     Dates: start: 20060504

REACTIONS (5)
  - COMPLEX PARTIAL SEIZURES [None]
  - ENCEPHALITIS [None]
  - MENINGITIS ASEPTIC [None]
  - PLEOCYTOSIS [None]
  - PROTEIN TOTAL INCREASED [None]
